FAERS Safety Report 4626756-0 (Version None)
Quarter: 2005Q1

REPORT INFORMATION
  Report Type: 
  Country: None (occurrence: None)
  Receive Date: 20050331
  Receipt Date: 20050324
  Transmission Date: 20050727
  Serious: Yes (Life-Threatening, Hospitalization)
  Sender: FDA-Public Use
  Company Number: 2005-125625-NL

PATIENT
  Age: 59 Year
  Sex: Female

DRUGS (4)
  1. MIRTAZAPINE [Suspect]
     Indication: DEPRESSION
     Dosage: 15 MG/ 30 MG ORAL
     Route: 048
     Dates: start: 20041102, end: 20041104
  2. MIRTAZAPINE [Suspect]
     Indication: SLEEP DISORDER
     Dosage: 15 MG/ 30 MG ORAL
     Route: 048
     Dates: start: 20041102, end: 20041104
  3. CITALOPRAM HYDROBROMIDE [Concomitant]
  4. PREDNISOLONE [Concomitant]

REACTIONS (2)
  - SUICIDAL IDEATION [None]
  - SUICIDE ATTEMPT [None]
